FAERS Safety Report 23426209 (Version 1)
Quarter: 2024Q1

REPORT INFORMATION
  Report Type: Spontaneous
  Country: US (occurrence: US)
  Receive Date: 20240122
  Receipt Date: 20240122
  Transmission Date: 20240410
  Serious: Yes (Hospitalization, Other)
  Sender: FDA-Public Use
  Company Number: US-AUROBINDO-AUR-APL-2024-001895

PATIENT
  Age: 34 Year
  Sex: Female

DRUGS (1)
  1. METHADONE [Suspect]
     Active Substance: METHADONE HYDROCHLORIDE
     Indication: Product used for unknown indication
     Dosage: UNK
     Route: 065

REACTIONS (9)
  - Leukoencephalopathy [Recovered/Resolved]
  - Dystonia [Recovered/Resolved]
  - Delirium [Recovered/Resolved]
  - Toxicity to various agents [Recovered/Resolved]
  - Muscle rigidity [Recovered/Resolved]
  - Pyrexia [Recovered/Resolved]
  - Clonus [Recovered/Resolved]
  - Mental status changes [Recovered/Resolved]
  - Catatonia [Recovered/Resolved]
